FAERS Safety Report 10406061 (Version 1)
Quarter: 2014Q3

REPORT INFORMATION
  Report Type: Spontaneous
  Country: US (occurrence: None)
  Receive Date: 20140822
  Receipt Date: 20140822
  Transmission Date: 20150326
  Serious: Yes (Hospitalization)
  Sender: FDA-Public Use
  Company Number: None

PATIENT
  Age: 18 Day
  Sex: Female
  Weight: 3.5 kg

DRUGS (1)
  1. VANCOMYCIN [Suspect]
     Active Substance: VANCOMYCIN
     Dosage: 1040MG 26 DEGREES IV
     Route: 042
     Dates: start: 20140627, end: 20140628

REACTIONS (3)
  - Pyrexia [None]
  - Heart rate increased [None]
  - Incorrect dose administered [None]

NARRATIVE: CASE EVENT DATE: 20140628
